FAERS Safety Report 8155196-5 (Version None)
Quarter: 2012Q1

REPORT INFORMATION
  Report Type: 
  Country: None (occurrence: None)
  Receive Date: 20120222
  Receipt Date: 20120217
  Transmission Date: 20120608
  Serious: Yes (Hospitalization)
  Sender: FDA-Public Use
  Company Number: GB-AMGEN-GBRCT2012005545

PATIENT
  Age: 37 Year
  Sex: Male

DRUGS (1)
  1. XGEVA [Suspect]
     Indication: BONE GIANT CELL TUMOUR
     Dosage: 120 MG, QMO
     Route: 058
     Dates: start: 20100618, end: 20111205

REACTIONS (1)
  - TUMOUR EXCISION [None]
